FAERS Safety Report 16780916 (Version 2)
Quarter: 2019Q4

REPORT INFORMATION
  Report Type: Spontaneous
  Country: US (occurrence: US)
  Receive Date: 20190906
  Receipt Date: 20191007
  Transmission Date: 20200122
  Serious: Yes (Death, Hospitalization, Other)
  Sender: FDA-Public Use
  Company Number: US-GLAXOSMITHKLINE-US2019AMR160886

PATIENT
  Sex: Male

DRUGS (1)
  1. INCRUSE ELLIPTA [Suspect]
     Active Substance: UMECLIDINIUM BROMIDE
     Indication: PRODUCT USED FOR UNKNOWN INDICATION
     Dosage: 1 PUFF(S), QD
     Route: 065
     Dates: start: 20180925, end: 201811

REACTIONS (19)
  - Transaminases increased [Fatal]
  - Pulmonary oedema [Unknown]
  - Pneumothorax [Fatal]
  - Deep vein thrombosis [Fatal]
  - Azotaemia [Fatal]
  - Interstitial lung disease [Fatal]
  - Anaemia [Fatal]
  - Decubitus ulcer [Fatal]
  - Pneumonia [Unknown]
  - Pulmonary fibrosis [Fatal]
  - Encephalopathy [Fatal]
  - Diabetes mellitus [Fatal]
  - Mastoiditis [Fatal]
  - Acute respiratory distress syndrome [Fatal]
  - Critical illness [Fatal]
  - Neuropathy peripheral [Fatal]
  - Hospitalisation [Unknown]
  - Sepsis [Fatal]
  - Condition aggravated [Unknown]
